FAERS Safety Report 4287984-X (Version None)
Quarter: 2004Q1

REPORT INFORMATION
  Report Type: 
  Country: None (occurrence: None)
  Receive Date: 20040202
  Receipt Date: 20030521
  Transmission Date: 20041129
  Serious: Yes (Hospitalization)
  Sender: FDA-Public Use
  Company Number: 136835USA

PATIENT
  Age: 51 Year
  Sex: Male
  Weight: 108.8633 kg

DRUGS (6)
  1. COPAXONE [Suspect]
     Indication: MULTIPLE SCLEROSIS
     Dosage: 20 MILLIGRAM DAILY SUBCUTANEOUS
     Route: 058
     Dates: start: 20020412
  2. FLOMAX [Concomitant]
  3. DITROPAN [Concomitant]
  4. BACLOFEN [Concomitant]
  5. VIAGRA [Concomitant]
  6. TYLENOL (CAPLET) [Concomitant]

REACTIONS (7)
  - BLOOD PRESSURE INCREASED [None]
  - CHEST PAIN [None]
  - DYSPNOEA [None]
  - FLUSHING [None]
  - INJECTION SITE ERYTHEMA [None]
  - INSOMNIA [None]
  - NAUSEA [None]
